FAERS Safety Report 20008803 (Version 3)
Quarter: 2021Q4

REPORT INFORMATION
  Report Type: Spontaneous
  Country: JP (occurrence: JP)
  Receive Date: 20211028
  Receipt Date: 20211208
  Transmission Date: 20220303
  Serious: Yes (Death, Other)
  Sender: FDA-Public Use
  Company Number: JP-PFIZER INC-202101394998

PATIENT
  Age: 6 Decade
  Sex: Male

DRUGS (3)
  1. PREGABALIN [Suspect]
     Active Substance: PREGABALIN
     Dosage: UNK
     Route: 048
  2. ALCOHOL [Suspect]
     Active Substance: ALCOHOL
     Dosage: UNK
     Route: 048
  3. ETIZOLAM [Suspect]
     Active Substance: ETIZOLAM
     Dosage: UNK
     Route: 048

REACTIONS (5)
  - Myocardial ischaemia [Fatal]
  - Asphyxia [Fatal]
  - Vomiting [Fatal]
  - Intentional overdose [Fatal]
  - Toxicity to various agents [Fatal]
